FAERS Safety Report 4772307-X (Version None)
Quarter: 2005Q3

REPORT INFORMATION
  Report Type: 
  Country: None (occurrence: None)
  Receive Date: 20050919
  Receipt Date: 20050711
  Transmission Date: 20060218
  Serious: No
  Sender: FDA-Public Use
  Company Number: US-BRISTOL-MYERS SQUIBB COMPANY-13038310

PATIENT
  Age: 73 Year
  Sex: Female

DRUGS (2)
  1. DEFINITY [Suspect]
     Indication: ATRIAL FIBRILLATION
     Dates: start: 20050608, end: 20050608
  2. DEFINITY [Suspect]
     Indication: ECHOCARDIOGRAM
     Dates: start: 20050608, end: 20050608

REACTIONS (3)
  - BACK PAIN [None]
  - DYSPNOEA [None]
  - FLUSHING [None]
